FAERS Safety Report 7596661-9 (Version None)
Quarter: 2011Q3

REPORT INFORMATION
  Report Type: 
  Country: None (occurrence: None)
  Receive Date: 20110708
  Receipt Date: 20110628
  Transmission Date: 20111222
  Serious: Yes (Death, Hospitalization)
  Sender: FDA-Public Use
  Company Number: US-CELGENEUS-163-21880-11063791

PATIENT
  Age: 56 Year
  Sex: Female

DRUGS (8)
  1. LORAZEPAM [Concomitant]
     Route: 065
  2. IPRATROPIUM BROMIDE [Concomitant]
     Route: 065
  3. VENLAFAXINE [Concomitant]
     Route: 065
  4. ACYCLOVIR [Concomitant]
     Route: 065
  5. REVLIMID [Suspect]
     Dosage: 5 MILLIGRAM
     Route: 048
     Dates: start: 20110101, end: 20110201
  6. HYDROCODONE BITARTRATE AND ACETAMINOPHEN [Concomitant]
     Route: 065
  7. ALBUTEROL SULFATE AUTOHALER [Concomitant]
     Route: 065
  8. SPIRONOLACTONE [Concomitant]
     Route: 065

REACTIONS (2)
  - ASCITES [None]
  - DEATH [None]
